FAERS Safety Report 20559817 (Version 1)
Quarter: 2022Q1

REPORT INFORMATION
  Report Type: Report from Study
  Country: CA (occurrence: CA)
  Receive Date: 20220307
  Receipt Date: 20220307
  Transmission Date: 20220423
  Serious: Yes (Hospitalization)
  Sender: FDA-Public Use
  Company Number: CA-NOVARTISPH-PHHY2018CA135742

PATIENT
  Sex: Female

DRUGS (2)
  1. KISQALI [Suspect]
     Active Substance: RIBOCICLIB
     Indication: Breast cancer metastatic
     Dosage: 400 MG, UNK
     Route: 048
     Dates: start: 20180807
  2. KISQALI [Suspect]
     Active Substance: RIBOCICLIB
     Dosage: 200 MG DAILY 21 DAYS, OFF 7 DAYS
     Route: 048

REACTIONS (2)
  - Gait disturbance [Unknown]
  - Platelet count decreased [Unknown]
